FAERS Safety Report 9167913 (Version 3)
Quarter: 2013Q2

REPORT INFORMATION
  Report Type: Spontaneous
  Country: CA (occurrence: CA)
  Receive Date: 20130318
  Receipt Date: 20130430
  Transmission Date: 20140414
  Serious: Yes (Other)
  Sender: FDA-Public Use
  Company Number: CA-AMGEN-CANSP2013015716

PATIENT
  Age: 64 Year
  Sex: Female
  Weight: 57.27 kg

DRUGS (1)
  1. PROLIA [Suspect]
     Indication: OSTEOPOROSIS
     Dosage: 60 MG, UNK
     Dates: start: 20120608

REACTIONS (10)
  - Eye operation [Unknown]
  - Post procedural complication [Unknown]
  - Eye discharge [Unknown]
  - Malaise [Unknown]
  - Pain [Unknown]
  - Joint warmth [Unknown]
  - Joint swelling [Unknown]
  - Local swelling [Unknown]
  - Gout [Unknown]
  - Pain in extremity [Unknown]
